FAERS Safety Report 7495789-1 (Version None)
Quarter: 2011Q2

REPORT INFORMATION
  Report Type: 
  Country: None (occurrence: None)
  Receive Date: 20110523
  Receipt Date: 20110512
  Transmission Date: 20111010
  Serious: Yes (Hospitalization)
  Sender: FDA-Public Use
  Company Number: ZA-ELI_LILLY_AND_COMPANY-ZA201105004193

PATIENT
  Age: 26 Year
  Sex: Female

DRUGS (4)
  1. ZYPREXA [Suspect]
     Indication: SCHIZOPHRENIA
     Dosage: 50 MG, UNKNOWN
     Route: 048
  2. VALPROATE SODIUM [Concomitant]
     Dosage: 1.5 MG, BID
  3. TOPAMAX [Concomitant]
     Dosage: 300 MG, QD
  4. ABILIFY [Concomitant]
     Dosage: 50 MG, UNK

REACTIONS (3)
  - HOSPITALISATION [None]
  - DRUG LEVEL DECREASED [None]
  - OVERDOSE [None]
